FAERS Safety Report 14749618 (Version 1)
Quarter: 2018Q2

REPORT INFORMATION
  Report Type: Report from Study
  Country: None (occurrence: GB)
  Receive Date: 20180411
  Receipt Date: 20180411
  Transmission Date: 20180711
  Serious: Yes (Other)
  Sender: FDA-Public Use
  Company Number: GB-ABBVIE-18K-167-2319132-00

PATIENT
  Sex: Male

DRUGS (1)
  1. HUMIRA [Suspect]
     Active Substance: ADALIMUMAB
     Indication: CROHN^S DISEASE
     Route: 058
     Dates: start: 2015, end: 201710

REACTIONS (6)
  - Malaise [Unknown]
  - Liver injury [Unknown]
  - Head discomfort [Unknown]
  - Fatigue [Unknown]
  - Asthenia [Unknown]
  - Bone pain [Unknown]
